FAERS Safety Report 6039737-X (Version None)
Quarter: 2009Q1

REPORT INFORMATION
  Report Type: 
  Country: None (occurrence: None)
  Receive Date: 20090116
  Receipt Date: 20090108
  Transmission Date: 20090719
  Serious: Yes (Other)
  Sender: FDA-Public Use
  Company Number: US-WYE-H07602009

PATIENT
  Sex: Female
  Weight: 76.27 kg

DRUGS (4)
  1. EFFEXOR XR [Suspect]
     Indication: ANXIETY
     Dosage: RANGING FROM 37.5 MG TO 150 MG
     Route: 048
     Dates: start: 20030101, end: 20080101
  2. EFFEXOR XR [Suspect]
     Indication: AUTONOMIC NERVOUS SYSTEM IMBALANCE
     Dosage: TAPERED OFF
     Route: 048
     Dates: start: 20080101, end: 20080901
  3. EFFEXOR XR [Suspect]
     Dosage: HALF OF THE CONTENTS OF A 37.5 MG CAPSULE (OPENS THE CAPSULE AND COUNTS OUT HALF THE PELLETS)
     Route: 048
     Dates: start: 20081205
  4. KLONOPIN [Concomitant]

REACTIONS (7)
  - ANXIETY [None]
  - CONDITION AGGRAVATED [None]
  - FEELING ABNORMAL [None]
  - MALABSORPTION [None]
  - METABOLIC DISORDER [None]
  - PANIC ATTACK [None]
  - SELF-INJURIOUS IDEATION [None]
